FAERS Safety Report 9701921 (Version 2)
Quarter: 2013Q4

REPORT INFORMATION
  Report Type: Report from Study
  Country: CA (occurrence: CA)
  Receive Date: 20131121
  Receipt Date: 20131122
  Transmission Date: 20140711
  Serious: Yes (Life-Threatening, Other)
  Sender: FDA-Public Use
  Company Number: CA-JNJFOC-20131109605

PATIENT
  Age: 75 Year
  Sex: Female
  Weight: 63.2 kg

DRUGS (9)
  1. REMICADE [Suspect]
     Indication: CROHN^S DISEASE
     Route: 042
     Dates: start: 201309
  2. LIPITOR [Concomitant]
     Route: 065
  3. ATENOLOL [Concomitant]
     Route: 065
  4. PLAVIX [Concomitant]
     Route: 065
  5. ACETYLSALICYLIC ACID [Concomitant]
     Route: 065
  6. ZOPICLONE [Concomitant]
     Route: 065
  7. LORAZEPAM [Concomitant]
     Route: 065
  8. HYDROMORPHONE [Concomitant]
     Route: 065
  9. BETAHISTINE [Concomitant]
     Route: 065

REACTIONS (8)
  - Fall [Unknown]
  - Head injury [Unknown]
  - Contusion [Unknown]
  - Blood glucose decreased [Unknown]
  - Asthenia [Unknown]
  - Swelling face [Unknown]
  - Hypotension [Unknown]
  - Musculoskeletal disorder [Unknown]
